FAERS Safety Report 26045514 (Version 1)
Quarter: 2025Q4

REPORT INFORMATION
  Report Type: Spontaneous
  Country: IL (occurrence: IL)
  Receive Date: 20251114
  Receipt Date: 20251114
  Transmission Date: 20260117
  Serious: Yes (Other)
  Sender: SANDOZ
  Company Number: IL-SANDOZ-SDZ2025IL084536

PATIENT
  Age: 77 Year
  Sex: Female

DRUGS (4)
  1. AMLODIPINE [Suspect]
     Active Substance: AMLODIPINE BESYLATE
     Indication: Product used for unknown indication
     Dosage: UNK
     Route: 065
  2. JUBBONTI [Suspect]
     Active Substance: DENOSUMAB-BBDZ
     Indication: Product used for unknown indication
     Dosage: 60 MG ONCE EVERY SIX MONTHS
     Route: 065
     Dates: start: 20250910
  3. PREDNISONE [Suspect]
     Active Substance: PREDNISONE
     Indication: Product used for unknown indication
     Dosage: UNK
     Route: 065
  4. RAMIPRIL [Suspect]
     Active Substance: RAMIPRIL
     Indication: Product used for unknown indication
     Dosage: UNK
     Route: 065

REACTIONS (5)
  - Nausea [Unknown]
  - Headache [Unknown]
  - Pyrexia [Unknown]
  - Asthenia [Unknown]
  - Pain in extremity [Unknown]
